FAERS Safety Report 5419872-7 (Version None)
Quarter: 2007Q3

REPORT INFORMATION
  Report Type: 
  Country: None (occurrence: None)
  Receive Date: 20070820
  Receipt Date: 20070808
  Transmission Date: 20080115
  Serious: Yes (Other)
  Sender: FDA-Public Use
  Company Number: CA-PFIZER INC-2007066257

PATIENT
  Sex: Male

DRUGS (1)
  1. NORVASC [Suspect]

REACTIONS (2)
  - HERNIA REPAIR [None]
  - INFLAMMATION [None]
